FAERS Safety Report 9028763 (Version 1)
Quarter: 2013Q1

REPORT INFORMATION
  Report Type: Spontaneous
  Country: JP (occurrence: JP)
  Receive Date: 20130124
  Receipt Date: 20130124
  Transmission Date: 20140127
  Serious: Yes (Other)
  Sender: FDA-Public Use
  Company Number: JP-PFIZER INC-2013024917

PATIENT
  Sex: 0

DRUGS (4)
  1. VFEND [Suspect]
     Indication: CANDIDA INFECTION
  2. VFEND [Suspect]
     Indication: CANDIDA INFECTION
  3. FUNGUARD [Concomitant]
     Indication: CANDIDA INFECTION
  4. FUNGUARD [Concomitant]
     Indication: CANDIDA INFECTION

REACTIONS (1)
  - Interstitial lung disease [Recovered/Resolved]
